FAERS Safety Report 13427237 (Version 2)
Quarter: 2017Q2

REPORT INFORMATION
  Report Type: Spontaneous
  Country: FR (occurrence: FR)
  Receive Date: 20170411
  Receipt Date: 20170417
  Transmission Date: 20170830
  Serious: Yes (Other)
  Sender: FDA-Public Use
  Company Number: PHHY2017FR053850

PATIENT
  Age: 13 Year
  Sex: Male

DRUGS (2)
  1. MODAFINIL. [Concomitant]
     Active Substance: MODAFINIL
     Indication: NARCOLEPSY
     Dosage: 600 MG, QD
     Route: 065
  2. METHYLPHENIDATE HYDROCHLORIDE. [Suspect]
     Active Substance: METHYLPHENIDATE HYDROCHLORIDE
     Indication: NARCOLEPSY
     Dosage: 1 MG/KG, UNK
     Route: 065

REACTIONS (5)
  - Ocular discomfort [Unknown]
  - Malaise [Unknown]
  - Eye movement disorder [Unknown]
  - Muscle rigidity [Unknown]
  - Epilepsy [Recovered/Resolved]
